FAERS Safety Report 22097442 (Version 1)
Quarter: 2023Q1

REPORT INFORMATION
  Report Type: Spontaneous
  Country: US (occurrence: US)
  Receive Date: 20230315
  Receipt Date: 20230315
  Transmission Date: 20230417
  Serious: No
  Sender: FDA-Public Use
  Company Number: US-AMGEN-USASP2023041885

PATIENT
  Age: 59 Year
  Sex: Female

DRUGS (2)
  1. REPATHA [Suspect]
     Active Substance: EVOLOCUMAB
     Indication: Product used for unknown indication
     Dosage: 140 MILLIGRAM
     Route: 065
     Dates: start: 202301
  2. REPATHA [Suspect]
     Active Substance: EVOLOCUMAB
     Dosage: 140 UNK
     Route: 065
     Dates: start: 20230307

REACTIONS (3)
  - Device use error [Unknown]
  - Presyncope [Unknown]
  - Dizziness [Unknown]

NARRATIVE: CASE EVENT DATE: 20230201
